FAERS Safety Report 10592031 (Version 1)
Quarter: 2014Q4

REPORT INFORMATION
  Report Type: Spontaneous
  Country: US (occurrence: US)
  Receive Date: 20141119
  Receipt Date: 20141119
  Transmission Date: 20150529
  Serious: Yes (Other)
  Sender: FDA-Public Use
  Company Number: US-RANBAXY-2014US-87872

PATIENT
  Age: 43 Year
  Sex: Female

DRUGS (2)
  1. LIDOCAINE. [Concomitant]
     Active Substance: LIDOCAINE
     Indication: ARTHRITIS
     Dosage: UNK
     Route: 014
  2. TRIAMCINOLONE [Suspect]
     Active Substance: TRIAMCINOLONE
     Indication: ARTHRITIS
     Dosage: UNK
     Route: 014

REACTIONS (1)
  - Menorrhagia [Unknown]
